FAERS Safety Report 5888649-0 (Version None)
Quarter: 2008Q3

REPORT INFORMATION
  Report Type: 
  Country: None (occurrence: None)
  Receive Date: 20080918
  Receipt Date: 20080908
  Transmission Date: 20090109
  Serious: Yes (Death, Hospitalization)
  Sender: FDA-Public Use
  Company Number: PL-MERCK-0809USA02058

PATIENT
  Sex: Male

DRUGS (6)
  1. TIAMATE [Suspect]
     Route: 048
  2. AMIODARONE [Suspect]
     Route: 065
  3. ACETAMINOPHEN [Suspect]
     Route: 065
  4. FUROSEMIDE [Suspect]
     Route: 065
  5. KETOPROFEN [Suspect]
     Route: 065
  6. MIDAZOLAM [Suspect]
     Route: 065

REACTIONS (1)
  - MULTIPLE DRUG OVERDOSE [None]
